FAERS Safety Report 14880815 (Version 9)
Quarter: 2019Q4

REPORT INFORMATION
  Report Type: Spontaneous
  Country: US (occurrence: US)
  Receive Date: 20180511
  Receipt Date: 20191205
  Transmission Date: 20200122
  Serious: Yes (Hospitalization, Other)
  Sender: FDA-Public Use
  Company Number: US-PFIZER INC-2018191074

PATIENT
  Age: 86 Year
  Sex: Female
  Weight: 54 kg

DRUGS (11)
  1. MAGNESIUM [Concomitant]
     Active Substance: MAGNESIUM
     Dosage: 400 MG, 1X/DAY
     Dates: start: 2017
  2. LYRICA [Suspect]
     Active Substance: PREGABALIN
     Indication: HYPOAESTHESIA
     Dosage: 40 MG, 2X/DAY
     Route: 048
     Dates: start: 2008
  3. CENTRUM SILVER [Concomitant]
     Active Substance: MINERALS\VITAMINS
     Indication: SUPPLEMENTATION THERAPY
     Dosage: UNK, 1X/DAY (ONE A DAY)
  4. ATENOLOL. [Concomitant]
     Active Substance: ATENOLOL
     Indication: BLOOD PRESSURE ABNORMAL
     Dosage: UNK UNK, 2X/DAY [25-1 AM AND 1P.M]
  5. ATENOLOL. [Concomitant]
     Active Substance: ATENOLOL
     Dosage: 25 MG, 2X/DAY  [ONCE IN MORNING AND ONCE IN EVENING]
  6. OMEPRAZOLE. [Concomitant]
     Active Substance: OMEPRAZOLE
     Dosage: 20 MG, 1X/DAY [1-20 MIN BEFORE EATING AM ONLY]
     Dates: start: 2016
  7. OMEGA XL [Concomitant]
     Active Substance: DIETARY SUPPLEMENT
     Indication: VITAMIN E DEFICIENCY
     Dosage: UNK
     Dates: start: 2015
  8. LYRICA [Suspect]
     Active Substance: PREGABALIN
     Dosage: 100 MG, 2X/DAY [ONE IN MORNING AND ONE AT NIGHT]
     Route: 048
  9. CALCIUM [Concomitant]
     Active Substance: CALCIUM
     Dosage: 500 MG, 1X/DAY
  10. POTASSIUM [Concomitant]
     Active Substance: POTASSIUM
     Dosage: 99 MG, 1X/DAY
  11. BIOTIN [Concomitant]
     Active Substance: BIOTIN
     Indication: ROUTINE HEALTH MAINTENANCE
     Dosage: 1000 MG, 1X/DAY
     Dates: start: 2016

REACTIONS (10)
  - Memory impairment [Unknown]
  - Back disorder [Unknown]
  - Product dose omission [Unknown]
  - Thinking abnormal [Unknown]
  - Arthritis [Not Recovered/Not Resolved]
  - Loss of personal independence in daily activities [Unknown]
  - Gait disturbance [Unknown]
  - Diarrhoea [Unknown]
  - Pollakiuria [Unknown]
  - Bladder hypertrophy [Unknown]

NARRATIVE: CASE EVENT DATE: 2018
